FAERS Safety Report 4364237-2 (Version None)
Quarter: 2004Q2

REPORT INFORMATION
  Report Type: 
  Country: None (occurrence: None)
  Receive Date: 20040519
  Receipt Date: 20040519
  Transmission Date: 20050107
  Serious: No
  Sender: FDA-Public Use
  Company Number: 2004-017

PATIENT

DRUGS (1)
  1. LIDOCAINE 2% [Suspect]
     Indication: LOCAL ANAESTHESIA
     Dosage: 5 ML, PRN, TOPICAL
     Route: 061

REACTIONS (5)
  - ANAESTHETIC COMPLICATION [None]
  - ANTERIOR CHAMBER DISORDER [None]
  - DRUG TOXICITY [None]
  - OCULAR TOXICITY [None]
  - OFF LABEL USE [None]
